FAERS Safety Report 5623173-1 (Version None)
Quarter: 2008Q1

REPORT INFORMATION
  Report Type: 
  Country: None (occurrence: None)
  Receive Date: 20080212
  Receipt Date: 20080204
  Transmission Date: 20080703
  Serious: Yes (Other)
  Sender: FDA-Public Use
  Company Number: US-ASTRAZENECA-2008UW02507

PATIENT
  Age: 80 Year
  Sex: Male

DRUGS (2)
  1. TOPROL-XL [Suspect]
     Indication: HEART RATE INCREASED
     Dosage: 25 A.M. AND 50 P.M
     Route: 048
     Dates: start: 20060101
  2. TOPROL-XL [Suspect]
     Indication: ATRIAL FIBRILLATION
     Dosage: 25 A.M. AND 50 P.M
     Route: 048
     Dates: start: 20060101

REACTIONS (1)
  - SMALL CELL LUNG CANCER STAGE UNSPECIFIED [None]
